FAERS Safety Report 20496957 (Version 1)
Quarter: 2022Q1

REPORT INFORMATION
  Report Type: Spontaneous
  Country: CA (occurrence: CA)
  Receive Date: 20220221
  Receipt Date: 20220221
  Transmission Date: 20220423
  Serious: Yes (Other)
  Sender: FDA-Public Use
  Company Number: CA-BRISTOL-MYERS SQUIBB COMPANY-BMS-2022-020350

PATIENT
  Sex: Female

DRUGS (64)
  1. KENALOG [Suspect]
     Active Substance: TRIAMCINOLONE ACETONIDE
     Indication: Product used for unknown indication
     Route: 014
  2. ACETAMINOPHEN\PROPOXYPHENE HYDROCHLORIDE [Suspect]
     Active Substance: ACETAMINOPHEN\PROPOXYPHENE HYDROCHLORIDE
     Indication: Product used for unknown indication
     Route: 065
  3. ACETAMINOPHEN [Suspect]
     Active Substance: ACETAMINOPHEN
     Indication: Product used for unknown indication
     Route: 065
  4. ALPRAZOLAM [Suspect]
     Active Substance: ALPRAZOLAM
     Indication: Product used for unknown indication
     Route: 065
  5. AMOXICILLIN TRIHYDRATE [Suspect]
     Active Substance: AMOXICILLIN
     Indication: Product used for unknown indication
     Route: 065
  6. HYDROCHLOROTHIAZIDE [Suspect]
     Active Substance: HYDROCHLOROTHIAZIDE
     Indication: Product used for unknown indication
     Route: 065
  7. ATORVASTATIN CALCIUM [Suspect]
     Active Substance: ATORVASTATIN CALCIUM
     Indication: Product used for unknown indication
     Route: 065
  8. ATROPINE [Suspect]
     Active Substance: ATROPINE
     Indication: Product used for unknown indication
     Route: 048
  9. ATROPINE SULFATE\DIPHENOXYLATE HYDROCHLORIDE [Suspect]
     Active Substance: ATROPINE SULFATE\DIPHENOXYLATE HYDROCHLORIDE
     Indication: Product used for unknown indication
     Route: 048
  10. FLUTICASONE FUROATE [Suspect]
     Active Substance: FLUTICASONE FUROATE
     Indication: Product used for unknown indication
     Dosage: SPRAY METERED DOSE
     Route: 065
  11. AZITHROMYCIN [Suspect]
     Active Substance: AZITHROMYCIN
     Indication: Product used for unknown indication
     Route: 065
  12. BACTROBAN [Suspect]
     Active Substance: MUPIROCIN\MUPIROCIN CALCIUM
     Indication: Product used for unknown indication
     Route: 065
  13. BETAMETHASONE DIPROPIONATE [Suspect]
     Active Substance: BETAMETHASONE DIPROPIONATE
     Indication: Product used for unknown indication
     Route: 065
  14. BETAMETHASONE SODIUM PHOSPHATE [Suspect]
     Active Substance: BETAMETHASONE SODIUM PHOSPHATE
     Indication: Product used for unknown indication
     Route: 065
  15. BIAXIN [Suspect]
     Active Substance: CLARITHROMYCIN
     Indication: Product used for unknown indication
     Route: 065
  16. BISACODYL [Suspect]
     Active Substance: BISACODYL
     Indication: Product used for unknown indication
     Route: 065
  17. BUDESONIDE [Suspect]
     Active Substance: BUDESONIDE
     Indication: Product used for unknown indication
     Route: 065
  18. MINERALS\VITAMINS [Suspect]
     Active Substance: MINERALS\VITAMINS
     Indication: Product used for unknown indication
     Route: 065
  19. CALCIUM CARBONATE\CHOLECALCIFEROL [Suspect]
     Active Substance: CALCIUM CARBONATE\CHOLECALCIFEROL
     Indication: Product used for unknown indication
     Route: 065
  20. CETIRIZINE [Suspect]
     Active Substance: CETIRIZINE HYDROCHLORIDE
     Indication: Allergy prophylaxis
     Route: 065
  21. CLARITHROMYCIN [Suspect]
     Active Substance: CLARITHROMYCIN
     Indication: Product used for unknown indication
     Route: 065
  22. CLOTRIMAZOLE [Suspect]
     Active Substance: CLOTRIMAZOLE
     Indication: Product used for unknown indication
     Route: 065
  23. MINERALS\OMEGA-3 FATTY ACIDS\VITAMINS [Suspect]
     Active Substance: MINERALS\OMEGA-3 FATTY ACIDS\VITAMINS
     Indication: Product used for unknown indication
     Route: 065
  24. CUPRIC OXIDE [Suspect]
     Active Substance: CUPRIC OXIDE
     Indication: Product used for unknown indication
     Route: 065
  25. DESONIDE [Suspect]
     Active Substance: DESONIDE
     Indication: Product used for unknown indication
     Route: 065
  26. DILAUDID [Suspect]
     Active Substance: HYDROMORPHONE HYDROCHLORIDE
     Indication: Product used for unknown indication
     Route: 065
  27. DIPHENHYDRAMINE [Suspect]
     Active Substance: DIPHENHYDRAMINE
     Indication: Product used for unknown indication
     Route: 065
  28. .ALPHA.-TOCOPHEROL ACETATE, DL- [Suspect]
     Active Substance: .ALPHA.-TOCOPHEROL ACETATE, DL-
     Indication: Product used for unknown indication
     Route: 065
  29. ERTAPENEM SODIUM [Suspect]
     Active Substance: ERTAPENEM SODIUM
     Indication: Product used for unknown indication
     Route: 065
  30. FLUTICASONE [Suspect]
     Active Substance: FLUTICASONE
     Indication: Product used for unknown indication
     Route: 065
  31. GLYCERIN [Suspect]
     Active Substance: GLYCERIN
     Indication: Product used for unknown indication
     Dosage: LIQUID ORAL
     Route: 048
  32. GRAMICIDIN [Suspect]
     Active Substance: GRAMICIDIN
     Indication: Product used for unknown indication
     Route: 065
  33. HABITROL [Suspect]
     Active Substance: NICOTINE
     Indication: Product used for unknown indication
     Dosage: PATCH
     Route: 065
  34. HUMIRA [Suspect]
     Active Substance: ADALIMUMAB
     Indication: Crohn^s disease
     Dosage: SOLUTION SUBCUTANEOUS
     Route: 058
  35. HYDROCHLOROTHIAZIDE [Suspect]
     Active Substance: HYDROCHLOROTHIAZIDE
     Indication: Product used for unknown indication
     Route: 065
  36. LOMOTIL [Suspect]
     Active Substance: ATROPINE SULFATE\DIPHENOXYLATE HYDROCHLORIDE
     Indication: Product used for unknown indication
     Dosage: UNK
     Route: 048
  37. LOPERAMIDE [Suspect]
     Active Substance: LOPERAMIDE
     Indication: Product used for unknown indication
     Route: 048
  38. POLYETHYLENE GLYCOLS [Suspect]
     Active Substance: POLYETHYLENE GLYCOLS
     Indication: Product used for unknown indication
     Route: 065
  39. POLYETHYLENE GLYCOL\PROPYLENE GLYCOL\SODIUM CHLORIDE [Suspect]
     Active Substance: POLYETHYLENE GLYCOL\PROPYLENE GLYCOL\SODIUM CHLORIDE
     Indication: Product used for unknown indication
     Dosage: INTRA-NASAL
     Route: 065
  40. MAGNESIUM [Suspect]
     Active Substance: MAGNESIUM
     Indication: Product used for unknown indication
     Route: 065
  41. MESALAMINE [Suspect]
     Active Substance: MESALAMINE
     Indication: Product used for unknown indication
     Route: 065
  42. METRONIDAZOLE [Suspect]
     Active Substance: METRONIDAZOLE
     Indication: Product used for unknown indication
     Route: 065
  43. MORPHINE SULFATE [Suspect]
     Active Substance: MORPHINE SULFATE
     Indication: Product used for unknown indication
     Route: 065
  44. MUPIROCIN CALCIUM [Suspect]
     Active Substance: MUPIROCIN CALCIUM
     Indication: Product used for unknown indication
     Route: 065
  45. MUPIROCIN CALCIUM [Suspect]
     Active Substance: MUPIROCIN CALCIUM
     Dosage: UNK
     Route: 061
  46. NADOLOL [Suspect]
     Active Substance: NADOLOL
     Indication: Product used for unknown indication
     Route: 065
  47. NEOMYCIN [Suspect]
     Active Substance: NEOMYCIN
     Indication: Product used for unknown indication
     Route: 065
  48. NICODERM CQ [Suspect]
     Active Substance: NICOTINE
     Indication: Product used for unknown indication
     Dosage: PATCH
     Route: 065
  49. NICOTINE POLACRILEX [Suspect]
     Active Substance: NICOTINE
     Indication: Product used for unknown indication
     Route: 065
  50. PANTOPRAZOLE SODIUM [Suspect]
     Active Substance: PANTOPRAZOLE SODIUM
     Indication: Product used for unknown indication
     Route: 065
  51. POLYMYXIN B [Suspect]
     Active Substance: POLYMYXIN B
     Indication: Product used for unknown indication
     Route: 065
  52. PREDNISONE [Suspect]
     Active Substance: PREDNISONE
     Indication: Product used for unknown indication
     Route: 065
  53. PREGABALIN [Suspect]
     Active Substance: PREGABALIN
     Indication: Product used for unknown indication
     Route: 065
  54. REFRESH TEARS [Suspect]
     Active Substance: CARBOXYMETHYLCELLULOSE SODIUM
     Indication: Product used for unknown indication
     Dosage: DROPS OPHTHALMIC
     Route: 047
  55. SODIUM BICARBONATE\SODIUM CHLORIDE [Suspect]
     Active Substance: SODIUM BICARBONATE\SODIUM CHLORIDE
     Indication: Product used for unknown indication
     Dosage: SOLUTION NASAL, ROUTE: INTRA-NASAL
     Route: 065
  56. SODIUM CHLORIDE [Suspect]
     Active Substance: SODIUM CHLORIDE
     Indication: Product used for unknown indication
     Dosage: ROUTE: INTRA-NASAL
     Route: 065
  57. MORPHINE SULFATE [Suspect]
     Active Substance: MORPHINE SULFATE
     Indication: Product used for unknown indication
     Route: 065
  58. SULFAMETHOXAZOLE\TRIMETHOPRIM [Suspect]
     Active Substance: SULFAMETHOXAZOLE\TRIMETHOPRIM
     Indication: Product used for unknown indication
     Route: 065
  59. TRIAMCINOLONE ACETONIDE [Suspect]
     Active Substance: TRIAMCINOLONE ACETONIDE
     Indication: Product used for unknown indication
     Dosage: SUSPENSION INTRA-ARTICULAR
     Route: 014
  60. VITAMIN D NOS [Suspect]
     Active Substance: VITAMIN D NOS
     Indication: Product used for unknown indication
     Route: 065
  61. XANTOFYL PALMITATE [Suspect]
     Active Substance: XANTOFYL PALMITATE
     Indication: Product used for unknown indication
     Route: 065
  62. ZEAXANTHIN [Suspect]
     Active Substance: ZEAXANTHIN
     Indication: Product used for unknown indication
     Route: 065
  63. ZINC OXIDE [Suspect]
     Active Substance: ZINC OXIDE
     Indication: Product used for unknown indication
     Route: 065
  64. VALSARTAN [Concomitant]
     Active Substance: VALSARTAN
     Indication: Product used for unknown indication
     Route: 065

REACTIONS (2)
  - Macular degeneration [Unknown]
  - Drug ineffective [Unknown]
